FAERS Safety Report 7013789-2 (Version None)
Quarter: 2010Q3

REPORT INFORMATION
  Report Type: 
  Country: None (occurrence: None)
  Receive Date: 20100924
  Receipt Date: 20100913
  Transmission Date: 20110219
  Serious: Yes (Life-Threatening)
  Sender: FDA-Public Use
  Company Number: FR-WYE-H17585010

PATIENT
  Sex: Male
  Weight: 2.2 kg

DRUGS (4)
  1. EUPANTOL [Suspect]
     Indication: PROPHYLAXIS AGAINST GASTROINTESTINAL ULCER
     Dosage: UNKNOWN
     Route: 042
     Dates: start: 20100822
  2. FENTANYL [Interacting]
     Indication: ENDOTRACHEAL INTUBATION
     Dosage: UNKNOWN
     Route: 042
     Dates: start: 20100822
  3. PERFALGAN [Concomitant]
     Indication: PAIN
     Dosage: UNKNOWN
     Route: 042
     Dates: start: 20100801
  4. REVATIO [Interacting]
     Indication: PULMONARY ARTERIAL HYPERTENSION
     Route: 042
     Dates: start: 20100903, end: 20100903

REACTIONS (5)
  - ANAEMIA [None]
  - DRUG INTERACTION [None]
  - EPISTAXIS [None]
  - RESPIRATORY DISTRESS [None]
  - TRACHEAL HAEMORRHAGE [None]
